FAERS Safety Report 17766598 (Version 4)
Quarter: 2021Q3

REPORT INFORMATION
  Report Type: Spontaneous
  Country: US (occurrence: US)
  Receive Date: 20200511
  Receipt Date: 20210809
  Transmission Date: 20211014
  Serious: No
  Sender: FDA-Public Use
  Company Number: US-VERTEX PHARMACEUTICALS-2020-010315

PATIENT
  Age: 40 Year
  Sex: Male
  Weight: 59 kg

DRUGS (6)
  1. BETHKIS [Concomitant]
     Active Substance: TOBRAMYCIN
  2. ALBUTEROL [SALBUTAMOL] [Concomitant]
     Active Substance: ALBUTEROL
  3. TOBRAMYCIN. [Concomitant]
     Active Substance: TOBRAMYCIN
     Dosage: UNK
  4. TRIKAFTA [Suspect]
     Active Substance: ELEXACAFTOR\IVACAFTOR\TEZACAFTOR
     Indication: CYSTIC FIBROSIS
     Dosage: 2 TAB(100 MG ELEXACAFTOR/ 50 MG TEZACAFTOR/ 75 MG IVACAFTOR) AM, 1 TAB (150MG IVACAFTOR) PM
     Route: 048
     Dates: start: 20200415
  5. PULMOZYME [Concomitant]
     Active Substance: DORNASE ALFA
  6. ZENPEP [Suspect]
     Active Substance: PANCRELIPASE AMYLASE\PANCRELIPASE LIPASE\PANCRELIPASE PROTEASE
     Indication: PRODUCT USED FOR UNKNOWN INDICATION
     Dosage: 3/MEALS AND 1?2 PER/SNAKS
     Route: 065

REACTIONS (4)
  - Cough [Recovering/Resolving]
  - Weight increased [Recovering/Resolving]
  - Liver function test increased [Recovered/Resolved]
  - Headache [Recovered/Resolved]

NARRATIVE: CASE EVENT DATE: 202004
